FAERS Safety Report 5723469-9 (Version None)
Quarter: 2008Q2

REPORT INFORMATION
  Report Type: 
  Country: None (occurrence: None)
  Receive Date: 20080425
  Receipt Date: 20080331
  Transmission Date: 20081010
  Serious: Yes (Hospitalization)
  Sender: FDA-Public Use
  Company Number: 2008S1005281

PATIENT
  Sex: Male

DRUGS (3)
  1. FLUOXETINE [Suspect]
     Indication: DEPRESSION
     Dosage: 20 MG; DAILY TRANSAMMMARY, TRANSPLACENTAL, 20 MG; TRANSMAMMARY; DAILY, 20 MG; TRANSPLACENTAL; DAILY
     Dates: end: 20070813
  2. FLUOXETINE [Suspect]
     Indication: DEPRESSION
     Dosage: 20 MG; DAILY TRANSAMMMARY, TRANSPLACENTAL, 20 MG; TRANSMAMMARY; DAILY, 20 MG; TRANSPLACENTAL; DAILY
     Dates: start: 20070101
  3. SYTRON (SODIUM FEREDETATE) [Concomitant]

REACTIONS (4)
  - DRUG EXPOSURE DURING PREGNANCY [None]
  - DRUG EXPOSURE VIA BREAST MILK [None]
  - SMALL FOR DATES BABY [None]
  - WEIGHT GAIN POOR [None]
